FAERS Safety Report 17574861 (Version 14)
Quarter: 2024Q2

REPORT INFORMATION
  Report Type: Other
  Country: DE (occurrence: None)
  Receive Date: 20200324
  Receipt Date: 20240610
  Transmission Date: 20240715
  Serious: Yes (Hospitalization, Other)
  Sender: FDA-Public Use
  Company Number: DE-ROCHE-2393556

PATIENT
  Age: 43 Year
  Sex: Female
  Weight: 71 kg

DRUGS (5)
  1. OCREVUS [Suspect]
     Active Substance: OCRELIZUMAB
     Indication: Relapsing-remitting multiple sclerosis
     Route: 042
     Dates: start: 20190401
  2. OCREVUS [Suspect]
     Active Substance: OCRELIZUMAB
     Route: 042
     Dates: start: 20190916
  3. OCREVUS [Suspect]
     Active Substance: OCRELIZUMAB
     Dosage: 4TH INFUSION
     Route: 042
     Dates: start: 20200505, end: 20200505
  4. CARBAMAZEPINE [Concomitant]
     Active Substance: CARBAMAZEPINE
  5. TORSEMIDE [Concomitant]
     Active Substance: TORSEMIDE

REACTIONS (16)
  - Tendon rupture [Recovered/Resolved]
  - Sepsis [Recovered/Resolved]
  - Fall [Unknown]
  - Limb injury [Recovered/Resolved]
  - Oropharyngeal pain [Recovered/Resolved]
  - Nasal congestion [Recovered/Resolved]
  - Rhinorrhoea [Recovered/Resolved]
  - Infection [Recovered/Resolved]
  - Muscular weakness [Recovering/Resolving]
  - Lymphocyte count decreased [Recovered/Resolved]
  - Fluid retention [Recovered/Resolved]
  - Weight increased [Recovered/Resolved]
  - Oedema [Unknown]
  - Hand fracture [Unknown]
  - Human papilloma virus test positive [Not Recovered/Not Resolved]
  - Menstruation irregular [Recovered/Resolved]

NARRATIVE: CASE EVENT DATE: 20190401
